FAERS Safety Report 4860205-2 (Version None)
Quarter: 2005Q4

REPORT INFORMATION
  Report Type: 
  Country: None (occurrence: None)
  Receive Date: 20051219
  Receipt Date: 20051205
  Transmission Date: 20060501
  Serious: Yes (Hospitalization, Other)
  Sender: FDA-Public Use
  Company Number: US-BRISTOL-MYERS SQUIBB COMPANY-13204847

PATIENT
  Age: 87 Year
  Sex: Male

DRUGS (5)
  1. CETUXIMAB [Suspect]
     Indication: NON-SMALL CELL LUNG CANCER
     Dosage: THERAPY INITIATED 03-NOV-2005.
     Route: 042
     Dates: start: 20051130, end: 20051130
  2. CARBOPLATIN [Suspect]
     Indication: NON-SMALL CELL LUNG CANCER
     Dosage: THERAPY INITIATED 03-NOV-2005.
     Route: 042
     Dates: start: 20051123, end: 20051123
  3. TAXOL [Suspect]
     Indication: NON-SMALL CELL LUNG CANCER
     Dosage: THERAPY INITIATED 03-NOV-2005.
     Route: 042
     Dates: start: 20051123, end: 20051123
  4. COUMADIN [Concomitant]
     Dates: start: 19910101
  5. ALBUTEROL [Concomitant]

REACTIONS (5)
  - ANAEMIA [None]
  - EXCORIATION [None]
  - FEBRILE NEUTROPENIA [None]
  - RASH MACULO-PAPULAR [None]
  - THROMBOCYTOPENIA [None]
